FAERS Safety Report 10583812 (Version 1)
Quarter: 2014Q4

REPORT INFORMATION
  Report Type: Spontaneous
  Country: GB (occurrence: None)
  Receive Date: 20141112
  Receipt Date: 20141112
  Transmission Date: 20150529
  Serious: Yes (Hospitalization)
  Sender: FDA-Public Use
  Company Number: IPC201410-000593

PATIENT
  Age: 72 Year
  Sex: Female

DRUGS (1)
  1. WARFARIN (WARFARIN) (WARFARIN) [Suspect]
     Active Substance: WARFARIN
     Indication: PROPHYLAXIS
     Dosage: 2 MG DAILY (LOADING DOSE)

REACTIONS (2)
  - International normalised ratio decreased [None]
  - Deep vein thrombosis [None]
